FAERS Safety Report 4945693-5 (Version None)
Quarter: 2006Q1

REPORT INFORMATION
  Report Type: 
  Country: None (occurrence: None)
  Receive Date: 20060316
  Receipt Date: 20060124
  Transmission Date: 20060701
  Serious: Yes (Hospitalization)
  Sender: FDA-Public Use
  Company Number: US-AVENTIS-200610757GDDC

PATIENT
  Age: 62 Year
  Sex: Male
  Weight: 88.45 kg

DRUGS (11)
  1. DOCETAXEL [Suspect]
     Indication: PANCREATIC CARCINOMA
     Dosage: DOSE: UNK
     Route: 042
     Dates: start: 20060118, end: 20060118
  2. LOVENOX [Suspect]
     Indication: PANCREATIC CARCINOMA
     Route: 058
     Dates: start: 20060118, end: 20060123
  3. IRINOTECAN HCL [Suspect]
     Indication: PANCREATIC CARCINOMA
     Dosage: DOSE: UNK
     Dates: start: 20060118, end: 20060118
  4. CETUXIMAB [Suspect]
     Indication: PANCREATIC CARCINOMA
     Dosage: DOSE: UNK
     Dates: start: 20060118, end: 20060118
  5. COLACE [Concomitant]
     Dosage: DOSE: UNK
  6. DIOVAN [Concomitant]
     Dosage: DOSE: UNK
  7. ZOFRAN [Concomitant]
     Dosage: DOSE: UNK
  8. COUMADIN [Concomitant]
     Dosage: DOSE: UNK
  9. DIGOXIN [Concomitant]
     Indication: ATRIAL FIBRILLATION
     Dosage: DOSE: UNK
  10. LOPRESSOR [Concomitant]
     Indication: ATRIAL FIBRILLATION
     Dosage: DOSE: UNK
  11. ASPIRIN [Concomitant]
     Indication: ATRIAL FIBRILLATION
     Dosage: DOSE: UNK

REACTIONS (6)
  - ABDOMINAL PAIN LOWER [None]
  - ATRIAL FIBRILLATION [None]
  - DIARRHOEA [None]
  - FEBRILE NEUTROPENIA [None]
  - PROTHROMBIN TIME PROLONGED [None]
  - RECTAL HAEMORRHAGE [None]
